FAERS Safety Report 19146238 (Version 1)
Quarter: 2021Q2

REPORT INFORMATION
  Report Type: Other
  Country: IT (occurrence: IT)
  Receive Date: 20210416
  Receipt Date: 20210416
  Transmission Date: 20210717
  Serious: Yes (Other)
  Sender: FDA-Public Use
  Company Number: IT-CELLTRION INC.-2021IT004692

PATIENT

DRUGS (1)
  1. TRUXIMA [Suspect]
     Active Substance: RITUXIMAB-ABBS
     Indication: NON-HODGKIN^S LYMPHOMA
     Dosage: 570 MG
     Route: 042
     Dates: start: 20201117, end: 20201117

REACTIONS (3)
  - Product substitution issue [Recovered/Resolved]
  - Dyspnoea [Recovered/Resolved]
  - Band sensation [Recovered/Resolved]

NARRATIVE: CASE EVENT DATE: 20201117
